FAERS Safety Report 11620399 (Version 2)
Quarter: 2015Q4

REPORT INFORMATION
  Report Type: Report from Study
  Country: US (occurrence: US)
  Receive Date: 20151012
  Receipt Date: 20151021
  Transmission Date: 20160304
  Serious: Yes (Other)
  Sender: FDA-Public Use
  Company Number: US-VERTEX PHARMACEUTICALS-2015-003657

PATIENT
  Age: 20 Year
  Sex: Male

DRUGS (20)
  1. PROVENTIL HFA [Concomitant]
     Active Substance: ALBUTEROL SULFATE
     Dosage: 2 PUFFS
     Route: 055
  2. ERGOCALCIFEROL. [Concomitant]
     Active Substance: ERGOCALCIFEROL
  3. LACTULOSE. [Concomitant]
     Active Substance: LACTULOSE
     Dosage: 15 ML, QD
     Route: 048
  4. CREON [Concomitant]
     Active Substance: PANCRELIPASE AMYLASE\PANCRELIPASE LIPASE\PANCRELIPASE PROTEASE
     Dosage: 5 CAPS WITH MEALS, 4 CAPS WITH SNACKS
     Route: 048
  5. MOTRIN [Concomitant]
     Active Substance: IBUPROFEN
     Dosage: 400 MG, PRN (EVERY  6  HOURS  )
  6. LUBIPROSTONE [Concomitant]
     Active Substance: LUBIPROSTONE
     Dosage: 1 DF, BID
     Route: 048
  7. XYZAL [Concomitant]
     Active Substance: LEVOCETIRIZINE DIHYDROCHLORIDE
     Indication: SEASONAL ALLERGY
     Dosage: 1 DF, QD
     Route: 048
  8. PROAIR HFA [Concomitant]
     Active Substance: ALBUTEROL SULFATE
     Dosage: 2 PUFFS
     Route: 055
  9. GLYCOLAX [Concomitant]
     Active Substance: POLYETHYLENE GLYCOL 3350
  10. HYPERSAL [Concomitant]
     Dosage: 4 ML, BID
     Route: 055
  11. ORKAMBI [Suspect]
     Active Substance: IVACAFTOR\LUMACAFTOR
     Dosage: 400/250MG, BID
     Route: 048
     Dates: start: 20150825
  12. SIDESTREAM NEBULIZER [Concomitant]
     Dosage: 1 UT, BID
  13. MIRALAX [Concomitant]
     Active Substance: POLYETHYLENE GLYCOL 3350
     Dosage: 17 G, QD
     Route: 048
  14. ORKAMBI [Suspect]
     Active Substance: IVACAFTOR\LUMACAFTOR
     Indication: CYSTIC FIBROSIS
     Dosage: 200/125 MG
     Route: 048
     Dates: start: 20150821
  15. NASONEX [Concomitant]
     Active Substance: MOMETASONE FUROATE
     Dosage: 2 SPRAY
     Route: 045
  16. VENTOLIN HFA [Concomitant]
     Active Substance: ALBUTEROL SULFATE
     Dosage: 2 PUFFS
     Route: 055
  17. CHOLECALCIFEROL [Concomitant]
     Active Substance: CHOLECALCIFEROL
     Dosage: 1 DF, QD
     Route: 048
  18. AQUADEKS [Concomitant]
     Dosage: 2 CAPS, QD
     Route: 048
  19. RA HI-CAL PLUS VITAMIN D [Concomitant]
     Dosage: 2 DF, QD
     Route: 048
  20. PREVACID [Concomitant]
     Active Substance: LANSOPRAZOLE
     Dosage: 30 MG, QD
     Route: 048

REACTIONS (5)
  - Cardiac flutter [Not Recovered/Not Resolved]
  - Palpitations [Unknown]
  - Drug prescribing error [Unknown]
  - Dyspnoea [Not Recovered/Not Resolved]
  - Oral pain [Recovered/Resolved]

NARRATIVE: CASE EVENT DATE: 20150821
